FAERS Safety Report 16502790 (Version 2)
Quarter: 2019Q3

REPORT INFORMATION
  Report Type: Spontaneous
  Country: US (occurrence: US)
  Receive Date: 20190701
  Receipt Date: 20190807
  Transmission Date: 20191004
  Serious: No
  Sender: FDA-Public Use
  Company Number: US-JNJFOC-20190637350

PATIENT
  Sex: Female

DRUGS (1)
  1. STELARA [Suspect]
     Active Substance: USTEKINUMAB
     Indication: CROHN^S DISEASE
     Route: 058

REACTIONS (6)
  - Diarrhoea [Unknown]
  - Nausea [Unknown]
  - Drug ineffective [Unknown]
  - Decreased appetite [Unknown]
  - Asthenia [Unknown]
  - Vomiting [Unknown]

NARRATIVE: CASE EVENT DATE: 201905
